FAERS Safety Report 15751893 (Version 1)
Quarter: 2018Q4

REPORT INFORMATION
  Report Type: Spontaneous
  Country: US (occurrence: US)
  Receive Date: 20181221
  Receipt Date: 20181221
  Transmission Date: 20190205
  Serious: Yes (Other)
  Sender: FDA-Public Use
  Company Number: US-UNITED THERAPEUTICS-UNT-2018-020898

PATIENT
  Age: 23 Year
  Sex: Female

DRUGS (1)
  1. REMODULIN [Suspect]
     Active Substance: TREPROSTINIL
     Indication: PULMONARY ARTERIAL HYPERTENSION
     Dosage: 0.08175 ?G/KG, CONTINUING
     Route: 058
     Dates: start: 20160804

REACTIONS (7)
  - Pain in jaw [Unknown]
  - Nausea [Unknown]
  - Diarrhoea [Unknown]
  - Decreased appetite [Unknown]
  - Chest pain [Unknown]
  - Device infusion issue [Unknown]
  - Headache [Unknown]

NARRATIVE: CASE EVENT DATE: 201812
